FAERS Safety Report 4407829-4 (Version None)
Quarter: 2004Q3

REPORT INFORMATION
  Report Type: 
  Country: None (occurrence: None)
  Receive Date: 20040721
  Receipt Date: 20040712
  Transmission Date: 20050211
  Serious: Yes (Hospitalization)
  Sender: FDA-Public Use
  Company Number: K200401032

PATIENT
  Age: 68 Year
  Sex: Female

DRUGS (13)
  1. ALTACE [Suspect]
     Indication: HYPERTONIA
     Dosage: 10 MG, QD, ORAL
     Route: 048
     Dates: start: 20030501, end: 20031222
  2. VOLTAREN [Suspect]
     Indication: CHOLELITHIASIS
     Dosage: 4 ML, QD, INTRAMUSCULAR
     Route: 030
     Dates: start: 20031217, end: 20031222
  3. SELOKEN ZOC (METOPROLOL SUCCINATE) [Concomitant]
  4. ACTRAPID HUMAN (INSULIN HUMAN) [Concomitant]
  5. ACETAMINOPHEN [Concomitant]
  6. SALURES (BENDROFLUMETHIAZIDE) [Concomitant]
  7. PLENDIL [Concomitant]
  8. GLUCOPHAGE [Concomitant]
  9. ASPIRIN [Concomitant]
  10. FUROSEMIDE [Concomitant]
  11. IMDUR [Concomitant]
  12. PANTOLOC ^BYK GULDEN^ (PANTOPRAZOLE SODIUM) [Concomitant]
  13. VENOFER [Concomitant]

REACTIONS (8)
  - ABDOMINAL PAIN [None]
  - ATRIAL FIBRILLATION [None]
  - CARDIAC ASTHMA [None]
  - CHOLECYSTITIS [None]
  - HAEMODIALYSIS [None]
  - PULMONARY OEDEMA [None]
  - RENAL ARTERY STENOSIS [None]
  - RENAL FAILURE ACUTE [None]
